FAERS Safety Report 23829908 (Version 1)
Quarter: 2024Q2

REPORT INFORMATION
  Report Type: Spontaneous
  Country: TN (occurrence: TN)
  Receive Date: 20240508
  Receipt Date: 20240508
  Transmission Date: 20240716
  Serious: Yes (Death, Other)
  Sender: FDA-Public Use
  Company Number: TN-ALKEM LABORATORIES LIMITED-TN-ALKEM-2023-14013

PATIENT
  Age: 50 Year
  Sex: Male

DRUGS (1)
  1. AZATHIOPRINE [Suspect]
     Active Substance: AZATHIOPRINE
     Indication: Crohn^s disease
     Dosage: 2.5 MILLIGRAM/KILOGRAM, QD (150 MG/DAY)
     Route: 065

REACTIONS (4)
  - Septic shock [Fatal]
  - Acute myeloid leukaemia [Unknown]
  - Hypoalbuminaemia [Unknown]
  - Haematotoxicity [Unknown]
